FAERS Safety Report 8373163-3 (Version None)
Quarter: 2012Q2

REPORT INFORMATION
  Report Type: 
  Country: None (occurrence: None)
  Receive Date: 20120521
  Receipt Date: 20120517
  Transmission Date: 20120825
  Serious: Yes (Death)
  Sender: FDA-Public Use
  Company Number: GB-CUBIST-2012S1000445

PATIENT
  Sex: Female

DRUGS (1)
  1. CUBICIN [Suspect]
     Indication: OSTEOMYELITIS

REACTIONS (2)
  - BLOOD CREATININE INCREASED [None]
  - STAPHYLOCOCCAL INFECTION [None]
